FAERS Safety Report 19118743 (Version 1)
Quarter: 2021Q2

REPORT INFORMATION
  Report Type: Spontaneous
  Country: CN (occurrence: CN)
  Receive Date: 20210410
  Receipt Date: 20210410
  Transmission Date: 20210717
  Serious: Yes (Other)
  Sender: FDA-Public Use
  Company Number: CN-UCBSA-2021015908

PATIENT
  Age: 27 Day
  Sex: Male

DRUGS (4)
  1. TOPIRAMATE. [Suspect]
     Active Substance: TOPIRAMATE
     Indication: SEIZURE
     Dosage: 5 MG PER KG PER DAY
  2. GAMMA?GLOBULIN [Suspect]
     Active Substance: IMMUNE GLOBULIN NOS
     Indication: SEIZURE
     Dosage: 2 GRAM PER KILOGRAM, UNK
  3. PHENOBARBITAL SODIUM. [Suspect]
     Active Substance: PHENOBARBITAL SODIUM
     Indication: SEIZURE
     Dosage: 5 MILLIGRAM PER KILOGRAM PER DAY
  4. LEVETIRACETAM. [Suspect]
     Active Substance: LEVETIRACETAM
     Indication: SEIZURE
     Dosage: 40 MILLIGRAM PER KILOGRAM PER DAY

REACTIONS (2)
  - Seizure [Recovered/Resolved]
  - Multiple-drug resistance [Unknown]
